FAERS Safety Report 8878922 (Version 3)
Quarter: 2012Q4

REPORT INFORMATION
  Report Type: 
  Country: US (occurrence: US)
  Receive Date: 20121026
  Receipt Date: 20121115
  Transmission Date: 20130627
  Serious: Yes (Hospitalization)
  Sender: FDA-Public Use
  Company Number: US-PURDUE-USA-2012-0094566

PATIENT
  Sex: Male

DRUGS (4)
  1. OXYCODONE HCL TABLETS (91-490) [Suspect]
     Indication: BREAKTHROUGH PAIN
     Dosage: 3-4 , 20mg, q3-4h , prn
     Route: 048
  2. OXYCODONE HCL TABLETS (91-490) [Suspect]
     Indication: CANCER PAIN
  3. OXYCONTIN (NDA 22-272) [Suspect]
     Indication: OSTEOARTHRITIS
     Dosage: 2 (80mg), bid
     Route: 048
  4. OXYCONTIN (NDA 22-272) [Suspect]
     Indication: CANCER PAIN
     Dosage: 80 mg, tid
     Route: 048
     Dates: start: 20101216

REACTIONS (2)
  - Prostate cancer metastatic [Unknown]
  - Pain [Unknown]
